FAERS Safety Report 10449203 (Version 1)
Quarter: 2014Q3

REPORT INFORMATION
  Report Type: Spontaneous
  Country: US (occurrence: None)
  Receive Date: 20140911
  Receipt Date: 20140911
  Transmission Date: 20150326
  Serious: Yes (Other)
  Sender: FDA-Public Use
  Company Number: None

PATIENT
  Age: 88 Year
  Sex: Female
  Weight: 56.7 kg

DRUGS (8)
  1. OMEPRAZOLE. [Concomitant]
     Active Substance: OMEPRAZOLE
  2. ANASTRAZOLE [Concomitant]
     Active Substance: ANASTROZOLE
  3. ALLOPURINOL. [Concomitant]
     Active Substance: ALLOPURINOL
  4. VASOTEC [Concomitant]
     Active Substance: ENALAPRIL MALEATE
  5. CALTRATE [Concomitant]
     Active Substance: CALCIUM CARBONATE
  6. FIBERCON [Concomitant]
     Active Substance: CALCIUM POLYCARBOPHIL
  7. LEVOFLOXACIN [Suspect]
     Active Substance: LEVOFLOXACIN
     Indication: LOCALISED INFECTION
     Dosage: 1 DAILY  MOUTH?DATE STOPPED TAKING: 7-2
     Route: 048
     Dates: start: 20140627
  8. ATENOLOL. [Concomitant]
     Active Substance: ATENOLOL

REACTIONS (3)
  - Confusional state [None]
  - Headache [None]
  - Hallucination [None]

NARRATIVE: CASE EVENT DATE: 20140627
